FAERS Safety Report 8180079-4 (Version None)
Quarter: 2012Q1

REPORT INFORMATION
  Report Type: 
  Country: None (occurrence: None)
  Receive Date: 20120302
  Receipt Date: 20120302
  Transmission Date: 20120608
  Serious: Yes (Hospitalization)
  Sender: FDA-Public Use
  Company Number: None

PATIENT
  Age: 16 Year
  Sex: Female
  Weight: 66.224 kg

DRUGS (1)
  1. IMPLANON [Suspect]

REACTIONS (9)
  - DRUG INEFFECTIVE [None]
  - MENORRHAGIA [None]
  - SYNCOPE [None]
  - SUPRAVENTRICULAR TACHYCARDIA [None]
  - CHEST PAIN [None]
  - HEART RATE ABNORMAL [None]
  - DYSSTASIA [None]
  - HYPOAESTHESIA [None]
  - DIZZINESS [None]
